FAERS Safety Report 12404249 (Version 3)
Quarter: 2016Q2

REPORT INFORMATION
  Report Type: Spontaneous
  Country: CH (occurrence: CH)
  Receive Date: 20160525
  Receipt Date: 20160601
  Transmission Date: 20160815
  Serious: Yes (Life-Threatening, Hospitalization)
  Sender: FDA-Public Use
  Company Number: CH-PFIZER INC-2016265562

PATIENT
  Age: 86 Year
  Sex: Female
  Weight: 55 kg

DRUGS (18)
  1. PIPERACILLIN TAZOBACTAM TEVA [Concomitant]
     Indication: PNEUMONIA
     Dosage: 4.5 G, 1X/8 HOURS
     Route: 042
     Dates: start: 20160215, end: 20160217
  2. MYCOSTATIN [Concomitant]
     Active Substance: NYSTATIN
     Route: 048
     Dates: start: 20160209, end: 20160215
  3. CALCIMAGON D3 [Concomitant]
     Active Substance: CALCIUM\CHOLECALCIFEROL
     Indication: BALANCE DISORDER
  4. ATORVASTATIN PFIZER [Suspect]
     Active Substance: ATORVASTATIN
     Indication: CEREBROVASCULAR ACCIDENT
     Dosage: 40 MG, 1X/DAY
     Route: 048
     Dates: start: 20160208, end: 20160404
  5. CORDARONE [Interacting]
     Active Substance: AMIODARONE HYDROCHLORIDE
     Indication: ATRIAL FIBRILLATION
     Dosage: 200 MG, 1X/DAY
     Route: 048
  6. AMOXICILLINE/ACIDE CLAVULANIQ. SANDOZ [Concomitant]
     Active Substance: AMOXICILLIN\CLAVULANIC ACID
     Dosage: 1 G, 1X/12 HOURS
     Route: 048
     Dates: start: 20160219, end: 20160223
  7. TORASEMID SANDOZ ECO [Concomitant]
     Indication: CARDIAC FAILURE
     Dosage: 2.5 MG, 1X/DAY
     Route: 048
     Dates: start: 20160215
  8. MOVICOL [Concomitant]
     Active Substance: POLYETHYLENE GLYCOL 3350\POTASSIUM CHLORIDE\SODIUM BICARBONATE\SODIUM CHLORIDE
     Indication: LAXATIVE SUPPORTIVE CARE
     Dosage: 1 DF (BAG), 1X/DAY
     Route: 048
     Dates: start: 20160202
  9. ELIQUIS [Interacting]
     Active Substance: APIXABAN
     Indication: CEREBROVASCULAR ACCIDENT
     Dosage: 2.5 MG, UNK
     Route: 048
     Dates: start: 20160208, end: 20160229
  10. SPASMO-URGENIN NEO [Concomitant]
     Active Substance: TROSPIUM
     Indication: URINARY INCONTINENCE
     Route: 048
     Dates: end: 20160404
  11. CALCIMAGON D3 [Concomitant]
     Active Substance: CALCIUM\CHOLECALCIFEROL
     Indication: GAIT DISTURBANCE
     Dosage: POSOLOGIE :  1-1-0-0
     Route: 048
     Dates: end: 20160320
  12. BELOC /00376903/ [Concomitant]
     Active Substance: METOPROLOL TARTRATE
     Indication: ATRIAL FIBRILLATION
     Dosage: 25 MG, 1X/DAY
     Route: 048
  13. PERINDOPRIL SANDOZ [Concomitant]
     Active Substance: PERINDOPRIL
     Indication: CEREBROVASCULAR ACCIDENT
     Route: 048
     Dates: start: 20160208
  14. SPIRICORT [Concomitant]
     Active Substance: PREDNISOLONE
     Indication: POLYMYALGIA RHEUMATICA
     Dosage: 10 MG, 1X/DAY
     Route: 048
  15. FLUCONAZOLE SANDOZ [Interacting]
     Active Substance: FLUCONAZOLE
     Dosage: 400 MG, 1X/DAY
     Route: 048
     Dates: start: 20160215, end: 20160215
  16. TORASEMID SANDOZ ECO [Concomitant]
     Indication: WEIGHT DECREASED
  17. XALATAN [Concomitant]
     Active Substance: LATANOPROST
     Indication: GLAUCOMA
     Dosage: 1 GTT, 1X/12 HOURS
     Route: 047
  18. SINTROM [Concomitant]
     Active Substance: ACENOCOUMAROL
     Indication: ATRIAL FIBRILLATION
     Dosage: UNK
     Route: 048
     Dates: start: 20160122, end: 20160208

REACTIONS (3)
  - Haemorrhagic anaemia [Recovered/Resolved]
  - Muscle haemorrhage [Recovered/Resolved]
  - Drug interaction [Unknown]

NARRATIVE: CASE EVENT DATE: 20160215
